FAERS Safety Report 8792814 (Version 1)
Quarter: 2012Q4

REPORT INFORMATION
  Report Type: 
  Country: FR (occurrence: FR)
  Receive Date: 20120918
  Receipt Date: 20120918
  Transmission Date: 20130627
  Serious: Yes (Other)
  Sender: FDA-Public Use
  Company Number: FR-GLAXOSMITHKLINE-B0829515A

PATIENT
  Sex: Female

DRUGS (1)
  1. NIQUITIN [Suspect]
     Indication: EX-TOBACCO USER
     Route: 002
     Dates: start: 201208, end: 201208

REACTIONS (1)
  - Gastric ulcer [Recovered/Resolved]
